FAERS Safety Report 4443358-X (Version None)
Quarter: 2004Q3

REPORT INFORMATION
  Report Type: 
  Country: None (occurrence: None)
  Receive Date: 20040901
  Receipt Date: 20040819
  Transmission Date: 20050211
  Serious: Yes (Other)
  Sender: FDA-Public Use
  Company Number: 2004229750US

PATIENT
  Age: 22 Year
  Sex: Female
  Weight: 55.8 kg

DRUGS (2)
  1. DEPO-PROVERA [Suspect]
     Dosage: 150 MG, LAST INJECTION
     Dates: start: 19931101, end: 19931101
  2. DEPO-PROVERA [Suspect]
     Dosage: 150 MG, LAST INJECTION
     Dates: start: 19940201, end: 19940201

REACTIONS (3)
  - AMENORRHOEA [None]
  - OVARIAN FAILURE [None]
  - UTERINE CYST [None]
